FAERS Safety Report 16556006 (Version 1)
Quarter: 2019Q3

REPORT INFORMATION
  Report Type: Spontaneous
  Country: IT (occurrence: IT)
  Receive Date: 20190710
  Receipt Date: 20190710
  Transmission Date: 20191004
  Serious: Yes (Hospitalization, Other)
  Sender: FDA-Public Use
  Company Number: IT-MYLANLABS-2019M1063917

PATIENT
  Age: 75 Year
  Sex: Male

DRUGS (1)
  1. LEVOFLOXACIN. [Suspect]
     Active Substance: LEVOFLOXACIN
     Indication: BACTERIAL INFECTION
     Dosage: 500 MG, QD
     Dates: start: 20181218, end: 20181218

REACTIONS (5)
  - Erythema of eyelid [Recovering/Resolving]
  - Hypotension [Recovering/Resolving]
  - Pruritus [Recovering/Resolving]
  - Tremor [Recovering/Resolving]
  - Syncope [Recovering/Resolving]

NARRATIVE: CASE EVENT DATE: 20181218
